FAERS Safety Report 8732746 (Version 2)
Quarter: 2012Q4

REPORT INFORMATION
  Report Type: 
  Country: DE (occurrence: DE)
  Receive Date: 20120820
  Receipt Date: 20120906
  Transmission Date: 20130627
  Serious: Yes (Hospitalization)
  Sender: FDA-Public Use
  Company Number: DE-BAYER-2012-082249

PATIENT
  Age: 60 Year
  Sex: Female
  Weight: 55 kg

DRUGS (9)
  1. NEXAVAR [Suspect]
     Indication: RENAL CELL CARCINOMA
     Dosage: 200 mg, BID
  2. MOXONIDIN [Concomitant]
     Dosage: 0.3 mg, QD
  3. CALCIUM [Concomitant]
     Dosage: 1 DF, BID
  4. METOHEXAL [Concomitant]
     Dosage: 47.5 mg, QD
  5. FERRO SANOL [Concomitant]
     Dosage: UNK
  6. ALDACTONE [SPIRONOLACTONE] [Concomitant]
     Dosage: 50 mg, QD
  7. L-THYROXIN [Concomitant]
     Dosage: 50 mg, QD
  8. NOVALGIN [Concomitant]
     Dosage: 20 DF, UNK
  9. METOCLOPRAMIDE [Concomitant]
     Dosage: 10 DF, BID

REACTIONS (4)
  - Altered state of consciousness [Recovered/Resolved]
  - Muscle spasms [Recovered/Resolved]
  - Hyponatraemia [None]
  - Hypokalaemia [None]
